FAERS Safety Report 18696720 (Version 1)
Quarter: 2021Q1

REPORT INFORMATION
  Report Type: Spontaneous
  Country: GB (occurrence: GB)
  Receive Date: 20210104
  Receipt Date: 20210104
  Transmission Date: 20210419
  Serious: Yes (Other)
  Sender: FDA-Public Use
  Company Number: GB-MYLANLABS-2020M1105939

PATIENT
  Age: 21 Year
  Sex: Male
  Weight: 66 kg

DRUGS (1)
  1. ISOTRETINOIN. [Suspect]
     Active Substance: ISOTRETINOIN
     Indication: ACNE
     Dosage: 70 MILLIGRAM
     Route: 048
     Dates: start: 20200321

REACTIONS (1)
  - Erectile dysfunction [Not Recovered/Not Resolved]
